FAERS Safety Report 6645598-8 (Version None)
Quarter: 2010Q1

REPORT INFORMATION
  Report Type: 
  Country: None (occurrence: None)
  Receive Date: 20100319
  Receipt Date: 20100319
  Transmission Date: 20100710
  Serious: Yes (Other)
  Sender: FDA-Public Use
  Company Number: None

PATIENT
  Age: 52 Year
  Sex: Female
  Weight: 53.978 kg

DRUGS (1)
  1. ACTONEL [Suspect]
     Indication: OSTEOPENIA
     Dosage: 35 MG ONCE PER WEEK PO
     Route: 048
     Dates: start: 20090601, end: 20090831

REACTIONS (6)
  - ARTHRALGIA [None]
  - INSOMNIA [None]
  - NAUSEA [None]
  - PAIN IN JAW [None]
  - TOOTH DISORDER [None]
  - TOOTHACHE [None]
